FAERS Safety Report 7268542-1 (Version None)
Quarter: 2010Q4

REPORT INFORMATION
  Report Type: 
  Country: None (occurrence: None)
  Receive Date: 20101206
  Receipt Date: 20101019
  Transmission Date: 20110411
  Serious: No
  Sender: FDA-Public Use
  Company Number: 2010SP055948

PATIENT
  Age: 36 Year
  Sex: Female

DRUGS (7)
  1. SAPHRIS [Suspect]
     Indication: BIPOLAR DISORDER
     Dosage: 20 MG QD, SL
     Route: 060
     Dates: start: 20100930, end: 20101022
  2. SAPHRIS [Suspect]
     Indication: PRODUCT USED FOR UNKNOWN INDICATION
     Dosage: 20 MG QD, SL
     Route: 060
     Dates: start: 20100930, end: 20101022
  3. TEGRETOL [Concomitant]
  4. LAVAZA [Concomitant]
  5. CRESTOR [Concomitant]
  6. PATADAY [Concomitant]
  7. TRIAMCINOLONE ACETONIDE [Concomitant]

REACTIONS (2)
  - INAPPROPRIATE SCHEDULE OF DRUG ADMINISTRATION [None]
  - VISUAL IMPAIRMENT [None]
